FAERS Safety Report 5456599-X (Version None)
Quarter: 2007Q3

REPORT INFORMATION
  Report Type: 
  Country: None (occurrence: None)
  Receive Date: 20070914
  Receipt Date: 20070914
  Transmission Date: 20080115
  Serious: No
  Sender: FDA-Public Use
  Company Number: None

PATIENT
  Age: 10 Year
  Sex: Female
  Weight: 44.6 kg

DRUGS (1)
  1. NEORAL [Suspect]
     Dosage: 100 BID WITH 25MG TABS TOTAL 125MG BD

REACTIONS (1)
  - THERAPEUTIC RESPONSE DECREASED [None]
